FAERS Safety Report 9643702 (Version 2)
Quarter: 2013Q4

REPORT INFORMATION
  Report Type: Spontaneous
  Country: US (occurrence: US)
  Receive Date: 20131024
  Receipt Date: 20131024
  Transmission Date: 20140711
  Serious: Yes (Other)
  Sender: FDA-Public Use
  Company Number: US-JNJFOC-20130910805

PATIENT
  Age: 54 Year
  Sex: Male

DRUGS (17)
  1. REMICADE [Suspect]
     Indication: PSORIATIC ARTHROPATHY
     Route: 042
     Dates: start: 20130903
  2. REMICADE [Suspect]
     Indication: PSORIATIC ARTHROPATHY
     Route: 042
     Dates: start: 20130815
  3. REMICADE [Suspect]
     Indication: PSORIATIC ARTHROPATHY
     Route: 042
     Dates: start: 2005, end: 2010
  4. ACETAMINOPHEN [Concomitant]
     Indication: PSORIATIC ARTHROPATHY
     Dosage: BID-TID
     Route: 065
  5. TRAMADOL [Concomitant]
     Indication: PSORIATIC ARTHROPATHY
     Route: 065
  6. MELOXICAM [Concomitant]
     Indication: PSORIATIC ARTHROPATHY
     Route: 065
  7. LEVOTHYROXINE [Concomitant]
     Indication: HYPOTHYROIDISM
     Route: 065
  8. PRAVASTATIN [Concomitant]
     Indication: BLOOD CHOLESTEROL
     Route: 065
  9. LISINOPRIL [Concomitant]
     Indication: BLOOD PRESSURE
     Route: 065
  10. CITALOPRAM [Concomitant]
     Indication: DEPRESSION
     Route: 065
  11. CYCLOBENZAPRINE [Concomitant]
     Indication: MUSCLE RELAXANT THERAPY
     Route: 065
  12. ROPINIROLE [Concomitant]
     Indication: RESTLESS LEGS SYNDROME
     Dosage: 4 TIMES PER WEEK
     Route: 065
  13. VITAMIN B [Concomitant]
     Indication: NUTRITIONAL SUPPLEMENTATION
     Dosage: 2-3 TIMES PER WEEK
     Route: 065
  14. IRON [Concomitant]
     Indication: NUTRITIONAL SUPPLEMENTATION
     Route: 066
  15. VITAMIN D3 [Concomitant]
     Indication: NUTRITIONAL SUPPLEMENTATION
     Dosage: 100 UNITS 2-3 TIMES PER WEEK
     Route: 065
  16. MULTIVITAMINS [Concomitant]
     Indication: NUTRITIONAL SUPPLEMENTATION
     Dosage: 1 TABLET 2-3 TIMES PER WEEK
     Route: 065
  17. GABAPENTIN [Concomitant]
     Indication: PAIN
     Dosage: HS/ ALT WEEK 200MH EVERY HS
     Route: 065
     Dates: end: 20130815

REACTIONS (6)
  - Hypotension [Recovered/Resolved]
  - Oxygen saturation decreased [Recovered/Resolved]
  - Infusion related reaction [Recovered/Resolved]
  - Dyspnoea [Recovered/Resolved]
  - Flushing [Recovered/Resolved]
  - Nausea [Recovered/Resolved]
